FAERS Safety Report 7040090-3 (Version None)
Quarter: 2010Q4

REPORT INFORMATION
  Report Type: 
  Country: None (occurrence: None)
  Receive Date: 20101012
  Receipt Date: 20100929
  Transmission Date: 20110411
  Serious: Yes (Other)
  Sender: FDA-Public Use
  Company Number: PHHY2010JP64951

PATIENT
  Age: 24 Year
  Sex: Female

DRUGS (4)
  1. CYCLOSPORINE [Suspect]
     Indication: BONE MARROW TRANSPLANT
     Dosage: UNK
     Route: 048
  2. PREDNISOLONE [Concomitant]
     Indication: BONE MARROW TRANSPLANT
     Dosage: 48MG
     Route: 048
  3. PREDNISOLONE [Concomitant]
     Dosage: 30MG
     Route: 048
  4. PREDNISOLONE [Concomitant]
     Dosage: 10MG
     Route: 048

REACTIONS (5)
  - ABDOMINAL PAIN [None]
  - ACUTE GRAFT VERSUS HOST DISEASE IN SKIN [None]
  - CONSTIPATION [None]
  - HERPES ZOSTER DISSEMINATED [None]
  - HISTIOCYTOSIS HAEMATOPHAGIC [None]
